FAERS Safety Report 25646127 (Version 2)
Quarter: 2025Q4

REPORT INFORMATION
  Report Type: Report from Study
  Country: US (occurrence: US)
  Receive Date: 20250805
  Receipt Date: 20251008
  Transmission Date: 20260118
  Serious: Yes (Other)
  Sender: ABBVIE
  Company Number: US-ABBVIE-6385684

PATIENT
  Age: 69 Year
  Sex: Female
  Weight: 68 kg

DRUGS (1)
  1. HUMIRA [Suspect]
     Active Substance: ADALIMUMAB
     Indication: Crohn^s disease
     Route: 058
     Dates: start: 20241022

REACTIONS (3)
  - Gastric haemorrhage [Unknown]
  - Gastric mucosa erythema [Unknown]
  - Precancerous condition [Unknown]

NARRATIVE: CASE EVENT DATE: 20250606
